FAERS Safety Report 12413885 (Version 2)
Quarter: 2016Q3

REPORT INFORMATION
  Report Type: Spontaneous
  Country: US (occurrence: US)
  Receive Date: 20160527
  Receipt Date: 20160707
  Transmission Date: 20161109
  Serious: Yes (Hospitalization)
  Sender: FDA-Public Use
  Company Number: US-CORCEPT THERAPEUTICS INC.-US-2016CRT000205

PATIENT
  Sex: Female

DRUGS (1)
  1. KORLYM [Suspect]
     Active Substance: MIFEPRISTONE
     Indication: PITUITARY-DEPENDENT CUSHING^S SYNDROME
     Dosage: 900 MG, QD
     Route: 048

REACTIONS (6)
  - Infection [Unknown]
  - Blood potassium decreased [Unknown]
  - Oral candidiasis [Unknown]
  - Weight decreased [Unknown]
  - White blood cell count decreased [Recovering/Resolving]
  - Mouth ulceration [Unknown]
